FAERS Safety Report 5040702-X (Version None)
Quarter: 2006Q2

REPORT INFORMATION
  Report Type: 
  Country: None (occurrence: None)
  Receive Date: 20060630
  Receipt Date: 20060630
  Transmission Date: 20061013
  Serious: No
  Sender: FDA-Public Use
  Company Number: None

PATIENT
  Age: 18 Month
  Sex: Female
  Weight: 10 kg

DRUGS (1)
  1. PREDNISOLONE TAB [Suspect]
     Indication: LIVER TRANSPLANT
     Dosage: 3MG DAILY PO
     Route: 048
     Dates: start: 20051106

REACTIONS (3)
  - DYSGEUSIA [None]
  - LIVER FUNCTION TEST ABNORMAL [None]
  - TREATMENT NONCOMPLIANCE [None]
